FAERS Safety Report 23725145 (Version 1)
Quarter: 2024Q2

REPORT INFORMATION
  Report Type: Spontaneous
  Country: EG (occurrence: EG)
  Receive Date: 20240410
  Receipt Date: 20240410
  Transmission Date: 20240716
  Serious: Yes (Hospitalization, Other)
  Sender: FDA-Public Use
  Company Number: EG-NOVOPROD-1199610

PATIENT
  Age: 55 Year
  Sex: Male

DRUGS (12)
  1. NOVORAPID [Suspect]
     Active Substance: INSULIN ASPART
     Indication: Diabetes mellitus
     Dosage: 60 IU, QD (25 U BEFORE BREAKFAST, 25 U BEFORE LUNCH AND 10 U BEFORE DINNER)
     Route: 058
  2. GLIPTUS PLUS [Concomitant]
     Indication: Diabetes mellitus
     Dosage: 2 TAB/DAY (1 DAY AND 1 NIGHT STARTED USING IT DURING THIS MONTH)
     Route: 048
  3. BLOCK ALPHA [Concomitant]
     Indication: Prostatic disorder
     Dosage: 1 TAB/DAY (STARTED USING IT FROM 10 YEARS AGO)
     Route: 048
  4. LIPITRIN [Concomitant]
     Indication: Hypertension
     Dosage: 1 TAB/ NIGHT (STARTED USING IT FROM 10 YEARS AGO)
     Route: 048
  5. GAPTIN [Concomitant]
     Indication: Nervous system disorder
     Dosage: 400 MG, QD (STARTED USING IT FROM 7 YEARS AGO)
     Route: 048
  6. MAGNESIUM PLUS [MAGNESIUM] [Concomitant]
     Indication: Myalgia
     Dosage: 1 TAB/DAY
     Route: 048
  7. TRULICITY [Concomitant]
     Active Substance: DULAGLUTIDE
     Indication: Product used for unknown indication
     Dosage: 25 MG (1 TAB/BEFORE SLEEPING)
     Route: 048
  8. RAMIPRIL [Concomitant]
     Active Substance: RAMIPRIL
     Dosage: 5 MG (1 TAB/ BEFORE BREAKFAST, STARTED USING IT FROM 20 YEARS AGO)
     Route: 048
  9. RAMIPRIL [Concomitant]
     Active Substance: RAMIPRIL
     Indication: Hypertension
     Dosage: 10 MG
     Route: 048
  10. RAMIPRIL [Concomitant]
     Active Substance: RAMIPRIL
     Dosage: 5 MG
     Route: 048
  11. RAMIPRIL [Concomitant]
     Active Substance: RAMIPRIL
     Dosage: 2.5 MG
     Route: 048
  12. LANTUS [Concomitant]
     Active Substance: INSULIN GLARGINE

REACTIONS (4)
  - Acidosis [Recovered/Resolved]
  - Toe amputation [Unknown]
  - Hyperglycaemia [Recovered/Resolved]
  - Abdominal pain [Recovered/Resolved]

NARRATIVE: CASE EVENT DATE: 20240325
